FAERS Safety Report 24986462 (Version 2)
Quarter: 2025Q1

REPORT INFORMATION
  Report Type: Spontaneous
  Country: IT (occurrence: IT)
  Receive Date: 20250219
  Receipt Date: 20250311
  Transmission Date: 20250408
  Serious: Yes (Life-Threatening, Other)
  Sender: PFIZER
  Company Number: None

PATIENT
  Age: 70 Year
  Sex: Female
  Weight: 61 kg

DRUGS (2)
  1. CARBOPLATIN [Suspect]
     Active Substance: CARBOPLATIN
     Indication: Head and neck cancer metastatic
     Route: 042
     Dates: start: 20241107, end: 20250206
  2. CARBOPLATIN [Suspect]
     Active Substance: CARBOPLATIN
     Indication: Oral neoplasm

REACTIONS (4)
  - Oxygen saturation decreased [Unknown]
  - Arrhythmia [Unknown]
  - Malaise [Unknown]
  - Blood pressure increased [Unknown]

NARRATIVE: CASE EVENT DATE: 20250206
